FAERS Safety Report 7340607-5 (Version None)
Quarter: 2011Q1

REPORT INFORMATION
  Report Type: 
  Country: None (occurrence: None)
  Receive Date: 20110218
  Receipt Date: 20101219
  Transmission Date: 20110831
  Serious: Yes (Hospitalization)
  Sender: FDA-Public Use
  Company Number: 20101219CINRY1744

PATIENT
  Age: 28 Year
  Sex: Female

DRUGS (10)
  1. OXYCODONE (OXYCODONE) [Concomitant]
  2. AMBIEN [Concomitant]
  3. MORPHINE [Concomitant]
  4. OPANA [Concomitant]
  5. CINRYZE [Suspect]
     Indication: HEREDITARY ANGIOEDEMA
     Dosage: (1000 UNIT, EVERY 3-4 DAYS), INTRAVENOUS
     Route: 042
     Dates: start: 20101101
  6. OBETROL [Concomitant]
  7. XANAX [Concomitant]
  8. RISPERDAL [Concomitant]
  9. ZOLOFT [Concomitant]
  10. AMITRIPTYLINE HYDROCHLORIDE [Concomitant]

REACTIONS (4)
  - HEREDITARY ANGIOEDEMA [None]
  - ANGIOEDEMA [None]
  - STRESS [None]
  - CONDITION AGGRAVATED [None]
